FAERS Safety Report 6093491-4 (Version None)
Quarter: 2009Q1

REPORT INFORMATION
  Report Type: 
  Country: None (occurrence: None)
  Receive Date: 20090226
  Receipt Date: 20090220
  Transmission Date: 20090719
  Serious: Yes (Other)
  Sender: FDA-Public Use
  Company Number: BE-AVENTIS-200911703GDDC

PATIENT
  Age: 45 Year
  Sex: Male

DRUGS (2)
  1. ARAVA [Suspect]
     Indication: ARTHRITIS
     Route: 048
  2. ARAVA [Suspect]
     Indication: SPONDYLOARTHROPATHY
     Route: 048

REACTIONS (2)
  - CARDIOMYOPATHY [None]
  - DYSPNOEA [None]
